FAERS Safety Report 12420054 (Version 1)
Quarter: 2016Q2

REPORT INFORMATION
  Report Type: Spontaneous
  Country: US (occurrence: US)
  Receive Date: 20160531
  Receipt Date: 20160531
  Transmission Date: 20160815
  Serious: Yes (Other)
  Sender: FDA-Public Use
  Company Number: US-GLAXOSMITHKLINE-US2016GSK075787

PATIENT
  Sex: Male
  Weight: 117.9 kg

DRUGS (3)
  1. INLYTA [Suspect]
     Active Substance: AXITINIB
     Indication: RENAL CELL CARCINOMA
     Dosage: 10 MG, QD
     Dates: start: 201509, end: 2016
  2. METFORMIN [Concomitant]
     Active Substance: METFORMIN HYDROCHLORIDE
     Indication: PRODUCT USED FOR UNKNOWN INDICATION
     Dosage: UNK
  3. VOLTAREN [Suspect]
     Active Substance: DICLOFENAC SODIUM
     Indication: PRODUCT USED FOR UNKNOWN INDICATION
     Dosage: UNK
     Dates: start: 201408, end: 201509

REACTIONS (17)
  - Fungaemia [Unknown]
  - Fatigue [Recovered/Resolved]
  - Fungal skin infection [Unknown]
  - Hepatic lesion [Unknown]
  - Weight decreased [Unknown]
  - Drug intolerance [Unknown]
  - Therapeutic response unexpected [Unknown]
  - Rash [Unknown]
  - Renal cell carcinoma recurrent [Unknown]
  - Burning sensation [Unknown]
  - Temperature intolerance [Unknown]
  - Blister [Unknown]
  - Pulmonary mass [Unknown]
  - Pruritus [Unknown]
  - Pigmentation disorder [Unknown]
  - Pallor [Unknown]
  - Hair colour changes [Unknown]
